FAERS Safety Report 10230768 (Version 1)
Quarter: 2014Q2

REPORT INFORMATION
  Report Type: Spontaneous
  Country: IT (occurrence: IT)
  Receive Date: 20140611
  Receipt Date: 20140611
  Transmission Date: 20141212
  Serious: Yes (Hospitalization)
  Sender: FDA-Public Use
  Company Number: IT-WATSON-2014-12112

PATIENT
  Age: 41 Year
  Sex: Female

DRUGS (2)
  1. LORAZEPAM [Suspect]
     Indication: PANIC ATTACK
     Dosage: UNK
     Route: 048
     Dates: start: 20120305, end: 20120705
  2. MINIAS [Suspect]
     Indication: ANXIETY
     Dosage: UNK
     Route: 048
     Dates: start: 20100705, end: 20120705

REACTIONS (1)
  - Drug dependence [Recovering/Resolving]
